FAERS Safety Report 14269765 (Version 1)
Quarter: 2017Q4

REPORT INFORMATION
  Report Type: Spontaneous
  Country: FR (occurrence: FR)
  Receive Date: 20171211
  Receipt Date: 20171211
  Transmission Date: 20180321
  Serious: Yes (Hospitalization, Other)
  Sender: FDA-Public Use
  Company Number: FR-OTSUKA-DJ20121950

PATIENT

DRUGS (7)
  1. LEVOTHYROX [Concomitant]
     Active Substance: LEVOTHYROXINE
     Route: 065
  2. FLUVOXAMINE [Concomitant]
     Active Substance: FLUVOXAMINE
  3. FLOXYFRAL [Concomitant]
     Active Substance: FLUVOXAMINE
     Route: 065
  4. ATARAX [Concomitant]
     Active Substance: HYDROXYZINE HYDROCHLORIDE
     Route: 065
  5. SERESTA [Concomitant]
     Active Substance: OXAZEPAM
     Route: 065
  6. DEPAMIDE [Concomitant]
     Active Substance: VALPROMIDE
     Route: 065
  7. ABILIFY [Suspect]
     Active Substance: ARIPIPRAZOLE
     Indication: DEPRESSION
     Route: 065
     Dates: start: 20110616

REACTIONS (3)
  - Rhabdomyolysis [Unknown]
  - Weight increased [Unknown]
  - Fall [Unknown]

NARRATIVE: CASE EVENT DATE: 20111224
